FAERS Safety Report 23853991 (Version 1)
Quarter: 2024Q2

REPORT INFORMATION
  Report Type: Other
  Country: ET (occurrence: ET)
  Receive Date: 20240514
  Receipt Date: 20240514
  Transmission Date: 20240716
  Serious: Yes (Life-Threatening, Hospitalization)
  Sender: FDA-Public Use
  Company Number: ET-B.Braun Medical Inc.-2156953

PATIENT
  Age: 68 Year
  Sex: Female

DRUGS (9)
  1. SODIUM CHLORIDE [Suspect]
     Active Substance: SODIUM CHLORIDE
     Indication: Shock
     Route: 042
  2. CALCIUM GLUCONATE [Suspect]
     Active Substance: CALCIUM GLUCONATE
  3. ATENOLOL [Concomitant]
     Active Substance: ATENOLOL
  4. ENALAPRIL [Concomitant]
     Active Substance: ENALAPRIL
  5. NOREPINEPHRINE [Suspect]
     Active Substance: NOREPINEPHRINE\NOREPINEPHRINE BITARTRATE
  6. DOPAMINE [Suspect]
     Active Substance: DOPAMINE HYDROCHLORIDE
  7. INSULIN NOS [Suspect]
     Active Substance: INSULIN NOS
  8. ATROPINE [Suspect]
     Active Substance: ATROPINE\ATROPINE SULFATE
  9. DEXTROSE [Suspect]
     Active Substance: DEXTROSE\DEXTROSE MONOHYDRATE

REACTIONS (1)
  - Drug ineffective [Unknown]
